FAERS Safety Report 16787329 (Version 1)
Quarter: 2019Q3

REPORT INFORMATION
  Report Type: Spontaneous
  Country: CN (occurrence: CN)
  Receive Date: 20190909
  Receipt Date: 20190909
  Transmission Date: 20191005
  Serious: Yes (Other)
  Sender: FDA-Public Use
  Company Number: CN-BAUSCH-BL-2019-025362

PATIENT
  Age: 46 Year
  Sex: Male

DRUGS (1)
  1. LOTEMAX [Suspect]
     Active Substance: LOTEPREDNOL ETABONATE
     Indication: PRODUCT USED FOR UNKNOWN INDICATION
     Route: 047
     Dates: start: 20190902, end: 20190902

REACTIONS (3)
  - Dizziness [Recovering/Resolving]
  - Vomiting [Recovering/Resolving]
  - Intraocular pressure increased [Recovering/Resolving]

NARRATIVE: CASE EVENT DATE: 20190902
